FAERS Safety Report 8571764-0 (Version None)
Quarter: 2012Q3

REPORT INFORMATION
  Report Type: 
  Country: None (occurrence: None)
  Receive Date: 20120806
  Receipt Date: 20120803
  Transmission Date: 20120928
  Serious: Yes (Hospitalization, Other)
  Sender: FDA-Public Use
  Company Number: PHEH2012US014737

PATIENT
  Sex: Female
  Weight: 56.2 kg

DRUGS (7)
  1. POTASSIUM [Concomitant]
     Indication: BLOOD POTASSIUM DECREASED
  2. LASIX [Concomitant]
     Indication: OEDEMA
  3. GLEEVEC [Suspect]
     Indication: CHRONIC MYELOID LEUKAEMIA
     Dosage: 400 MG, QD
     Route: 048
     Dates: start: 20030401
  4. MEGACE [Concomitant]
     Indication: DECREASED APPETITE
  5. RALOXIFENE HYDROCHLORIDE [Concomitant]
     Indication: OSTEOPOROSIS
  6. GLEEVEC [Suspect]
     Indication: GASTROINTESTINAL STROMAL TUMOUR
  7. PROTONIX [Concomitant]
     Indication: GASTROOESOPHAGEAL REFLUX DISEASE

REACTIONS (6)
  - HIP FRACTURE [None]
  - MUSCULAR WEAKNESS [None]
  - SUPRAVENTRICULAR TACHYCARDIA [None]
  - HEART RATE INCREASED [None]
  - ANAEMIA [None]
  - FALL [None]
